FAERS Safety Report 20174091 (Version 1)
Quarter: 2021Q4

REPORT INFORMATION
  Report Type: Spontaneous
  Country: HK (occurrence: HK)
  Receive Date: 20211213
  Receipt Date: 20211213
  Transmission Date: 20220303
  Serious: No
  Sender: FDA-Public Use
  Company Number: HK-ALKEM LABORATORIES LIMITED-HK-ALKEM-2020-07875

PATIENT
  Age: 42 Year
  Sex: Female

DRUGS (8)
  1. ISONIAZID [Suspect]
     Active Substance: ISONIAZID
     Indication: Lymphadenitis
     Dosage: 600 MILLIGRAM THRICE WEEKLY
     Route: 065
  2. ISONIAZID [Suspect]
     Active Substance: ISONIAZID
     Indication: Tuberculosis
  3. RIFAMPIN [Concomitant]
     Active Substance: RIFAMPIN
     Indication: Lymphadenitis
     Dosage: 450 MILLIGRAM
     Route: 065
  4. RIFAMPIN [Concomitant]
     Active Substance: RIFAMPIN
     Indication: Tuberculosis
  5. PYRAZINAMIDE [Concomitant]
     Active Substance: PYRAZINAMIDE
     Indication: Lymphadenitis
     Dosage: 1500 MILLIGRAM
     Route: 065
  6. PYRAZINAMIDE [Concomitant]
     Active Substance: PYRAZINAMIDE
     Indication: Tuberculosis
  7. Cirpofloxacin [Concomitant]
     Indication: Lymphadenitis
     Dosage: UNK
     Route: 065
  8. Cirpofloxacin [Concomitant]
     Indication: Tuberculosis

REACTIONS (2)
  - Breast pain [Recovered/Resolved]
  - Gynaecomastia [Recovered/Resolved]
